FAERS Safety Report 20707727 (Version 2)
Quarter: 2022Q2

REPORT INFORMATION
  Report Type: Report from Study
  Country: CA (occurrence: CA)
  Receive Date: 20220413
  Receipt Date: 20220422
  Transmission Date: 20220721
  Serious: Yes (Hospitalization, Other)
  Sender: FDA-Public Use
  Company Number: CA-ABBVIE-22K-028-4356111-00

PATIENT
  Age: 71 Year
  Sex: Female

DRUGS (1)
  1. RINVOQ [Suspect]
     Active Substance: UPADACITINIB
     Indication: Rheumatoid arthritis
     Route: 048
     Dates: start: 20210122, end: 20220331

REACTIONS (10)
  - Eye infection [Unknown]
  - Spinal fracture [Unknown]
  - Sciatica [Unknown]
  - Localised infection [Unknown]
  - Pain in extremity [Recovered/Resolved]
  - Memory impairment [Unknown]
  - Osteoporosis [Unknown]
  - Alopecia areata [Unknown]
  - Pain in extremity [Unknown]
  - Pain [Unknown]

NARRATIVE: CASE EVENT DATE: 20220401
